FAERS Safety Report 6088650-0 (Version None)
Quarter: 2009Q1

REPORT INFORMATION
  Report Type: 
  Country: None (occurrence: None)
  Receive Date: 20090224
  Receipt Date: 20090212
  Transmission Date: 20090719
  Serious: Yes (Other)
  Sender: FDA-Public Use
  Company Number: CA-ROCHE-614339

PATIENT
  Age: 21 Year
  Sex: Male

DRUGS (16)
  1. CELLCEPT [Suspect]
     Indication: AUTOIMMUNE INNER EAR DISEASE
     Route: 048
     Dates: start: 20090202, end: 20090208
  2. CELLCEPT [Suspect]
     Route: 048
     Dates: start: 20090209, end: 20090215
  3. CELLCEPT [Suspect]
     Route: 048
     Dates: start: 20090216
  4. PREDNISONE [Concomitant]
     Indication: AUTOIMMUNE DISORDER
     Route: 048
     Dates: start: 20080416, end: 20080425
  5. PREDNISONE [Concomitant]
     Route: 048
     Dates: start: 20080426, end: 20080430
  6. PREDNISONE [Concomitant]
     Route: 048
     Dates: start: 20080521, end: 20080526
  7. PREDNISONE [Concomitant]
     Route: 048
     Dates: start: 20080527, end: 20080101
  8. PREDNISONE [Concomitant]
     Route: 048
     Dates: start: 20080723, end: 20080730
  9. PREDNISONE [Concomitant]
     Route: 048
     Dates: start: 20080730, end: 20080806
  10. PREDNISONE [Concomitant]
     Route: 048
     Dates: start: 20081003
  11. PREDNISONE [Concomitant]
     Dosage: ONE DOSEFORM EVERY MORNING
     Route: 048
     Dates: start: 20090122, end: 20090216
  12. PREDNISONE [Concomitant]
     Dosage: ONE DOSEFORM EVERY MORNING
     Route: 048
     Dates: start: 20090216
  13. TYLENOL [Concomitant]
     Dosage: TYLENOL-SINUS EXTRA STRENGTH
     Route: 048
     Dates: start: 20090212
  14. EMTEC-30 [Concomitant]
     Dosage: DRUG: RATIO EMTEC DOSE: 300/30
     Route: 048
     Dates: start: 20080625
  15. NOVO-NAPROX [Concomitant]
     Dosage: AS NECESSARY
     Route: 048
     Dates: start: 20080625
  16. NOVO-NAPROX [Concomitant]
     Dosage: AS NECESSARY
     Route: 048
     Dates: start: 20080928

REACTIONS (1)
  - URINE COLOUR ABNORMAL [None]
